FAERS Safety Report 15899299 (Version 1)
Quarter: 2019Q1

REPORT INFORMATION
  Report Type: Spontaneous
  Country: FR (occurrence: FR)
  Receive Date: 20190201
  Receipt Date: 20190201
  Transmission Date: 20190417
  Serious: Yes (Hospitalization)
  Sender: FDA-Public Use
  Company Number: FR-TEVA-2019-FR-1006217

PATIENT
  Age: 75 Year
  Sex: Male
  Weight: 78 kg

DRUGS (12)
  1. AMOXICILLINE [Concomitant]
     Active Substance: AMOXICILLIN
  2. ACIDE CLAVULANIQUE [Concomitant]
     Active Substance: CLAVULANIC ACID
  3. PREDNISONE. [Suspect]
     Active Substance: PREDNISONE
     Indication: OROPHARYNGEAL PAIN
     Dosage: 60 MILLIGRAM DAILY;
     Route: 048
     Dates: start: 20181227, end: 20181230
  4. NATISPRAY [Concomitant]
     Active Substance: NITROGLYCERIN
  5. PARACETAMOL [Concomitant]
     Active Substance: ACETAMINOPHEN
  6. VALSARTAN. [Concomitant]
     Active Substance: VALSARTAN
  7. LANSOPRAZOLE. [Concomitant]
     Active Substance: LANSOPRAZOLE
  8. CLOPIDOGREL (CHLORHYDRATE DE) [Concomitant]
     Active Substance: CLOPIDOGREL HYDROCHLORIDE
  9. METFORMINE [Concomitant]
     Active Substance: METFORMIN HYDROCHLORIDE
  10. NEBIVOLOL. [Concomitant]
     Active Substance: NEBIVOLOL
  11. ROSUVASTATINE [Concomitant]
     Active Substance: ROSUVASTATIN
  12. SURGAM 200 MG, COMPRIME SECABLE [Suspect]
     Active Substance: TIAPROFENIC ACID
     Indication: OROPHARYNGEAL PAIN
     Route: 048
     Dates: start: 20181231

REACTIONS (1)
  - Pharyngeal abscess [Recovered/Resolved]

NARRATIVE: CASE EVENT DATE: 20190102
